FAERS Safety Report 6189381-9 (Version None)
Quarter: 2009Q2

REPORT INFORMATION
  Report Type: 
  Country: None (occurrence: None)
  Receive Date: 20090512
  Receipt Date: 20090424
  Transmission Date: 20091009
  Serious: Yes (Other)
  Sender: FDA-Public Use
  Company Number: 2009SP008911

PATIENT

DRUGS (1)
  1. TEMODAR [Suspect]
     Indication: GLIOBLASTOMA MULTIFORME
     Dosage: 300 MG; QD; PO
     Route: 048

REACTIONS (3)
  - ACCIDENTAL OVERDOSE [None]
  - BONE MARROW FAILURE [None]
  - DEEP VEIN THROMBOSIS [None]
